FAERS Safety Report 10219782 (Version 1)
Quarter: 2014Q1

REPORT INFORMATION
  Report Type: Spontaneous
  Country: US (occurrence: None)
  Receive Date: 20140306
  Receipt Date: 20140306
  Transmission Date: 20141002
  Serious: Yes (Death, Hospitalization)
  Sender: FDA-Public Use
  Company Number: 163-21880-12081012

PATIENT
  Age: 85 Year
  Sex: Female
  Weight: 60.9 kg

DRUGS (49)
  1. REVLIMID [Suspect]
     Indication: PLASMA CELL MYELOMA
     Route: 048
     Dates: start: 20110628, end: 20120809
  2. DEXAMETHASONE (DEXAMETHASONE) (UNKNOWN) [Suspect]
     Indication: PLASMA CELL MYELOMA
     Route: 048
     Dates: start: 20110628, end: 20120809
  3. ATENOLOL (ATENOLOL) [Concomitant]
  4. ASPIRIN (ACETYLSALICYLIC ACID) [Concomitant]
  5. REMERON [Concomitant]
  6. METAMUCIL [Concomitant]
  7. SYNTHROID (LEVOTHYROXINE SODIUM) [Concomitant]
  8. LEVAQUIN (LEVOFLOXACIN) [Concomitant]
  9. XANAX (ALPRAZOLAM) [Concomitant]
  10. LACTULOSE (LACTULOSE) [Concomitant]
  11. IMODIUM [Concomitant]
  12. SENOKOT [Concomitant]
  13. TYLENOL (PARACETAMOL) [Concomitant]
  14. AUGMENTIN [Concomitant]
  15. AMBIEN (ZOLPIDEM TARTRATE) [Concomitant]
  16. CYMBALTA [Concomitant]
  17. TRAZODONE (TRAZODONE) [Concomitant]
  18. FENTANYL (FENTANYL) (POULTICE OR PATCH) [Concomitant]
  19. OXYCODONE (OXYCODONE) [Concomitant]
  20. HYDROCODONE (HYDROCODONE) [Concomitant]
  21. ACYCLOVIR [Concomitant]
  22. PAXIL (PAROXETINE HYDROCHLORIDE) [Concomitant]
  23. POLYETHYLENE GLYCOL [Concomitant]
  24. GUAR GUM [Concomitant]
  25. MIRTAZAPINE (MIRTAZAPINE) [Concomitant]
  26. FILGRASTIM (FILGRASTIM) [Concomitant]
  27. POTASSIUM CHLORIDE (POTASSIUM CHLORIDE) [Concomitant]
  28. MAGNESIUM SULFATE [Concomitant]
  29. AMIODARONE (AMIODARONE) [Concomitant]
  30. FUROSEMIDE (FUROSEMIDE) [Concomitant]
  31. PROMETHAZINE (PROMETHAZINE) [Concomitant]
  32. BISACODYL (BISACODYL) [Concomitant]
  33. MAGNESIUM HYDROXIDE [Concomitant]
  34. CALCIUM + VITAMIN D (LEKOVIT CA) [Concomitant]
  35. FERROUS SULFATE (FERROUS SULFATE) [Concomitant]
  36. FAMOTIDINE [Concomitant]
  37. RIVAROXABAN [Concomitant]
  38. CEFAZOLIN (CEFAZOLIN) [Concomitant]
  39. DIPHENHYDRAMINE (DIPHENHYDRAMINE) [Concomitant]
  40. NALOXONE [Concomitant]
  41. MORPHINE [Concomitant]
  42. HYDROCORTISONE (HYDROCORTISONE) [Concomitant]
  43. OMEPRAZOLE (OMEPRAZOLE) [Concomitant]
  44. CEFTRIAXONE (CEFTRIAXONE) [Concomitant]
  45. ENOXAPARIN (ENOXAPARIN) [Concomitant]
  46. ONDANSETRON (ONDANSETRON) [Concomitant]
  47. HYDROMORPHONE (HYDROMORPHONE) [Concomitant]
  48. CELEXA (CITALOPRAM HYDROBROMIDE) [Concomitant]
  49. ELOTUZUMAB [Suspect]
     Indication: PLASMA CELL MYELOMA

REACTIONS (1)
  - Hip fracture [None]
